FAERS Safety Report 8039620-4 (Version None)
Quarter: 2012Q1

REPORT INFORMATION
  Report Type: 
  Country: None (occurrence: None)
  Receive Date: 20120111
  Receipt Date: 20111220
  Transmission Date: 20120608
  Serious: No
  Sender: FDA-Public Use
  Company Number: US-AMGEN-USASP2011067971

PATIENT
  Age: 52 Year
  Sex: Female

DRUGS (1)
  1. ENBREL [Suspect]
     Indication: PSORIATIC ARTHROPATHY
     Dosage: 50 MG, QWK
     Dates: start: 20110124

REACTIONS (7)
  - SINUSITIS [None]
  - PARANASAL SINUS HYPERSECRETION [None]
  - TONSILLITIS [None]
  - SINUS HEADACHE [None]
  - PHARYNGITIS [None]
  - DIZZINESS [None]
  - NAUSEA [None]
